FAERS Safety Report 4990194-1 (Version None)
Quarter: 2006Q2

REPORT INFORMATION
  Report Type: 
  Country: None (occurrence: None)
  Receive Date: 20060503
  Receipt Date: 20060111
  Transmission Date: 20061013
  Serious: Yes (Hospitalization)
  Sender: FDA-Public Use
  Company Number: US-MERCK-0601USA01578

PATIENT
  Age: 53 Year
  Sex: Female
  Weight: 70 kg

DRUGS (8)
  1. VIOXX [Suspect]
     Indication: ARTHRITIS
     Route: 048
     Dates: start: 20021105, end: 20041001
  2. HYDROCHLOROTHIAZIDE [Concomitant]
     Route: 065
  3. METHYLPREDNISOLONE [Concomitant]
     Route: 065
  4. CYCLOBENZAPRINE HYDROCHLORIDE [Concomitant]
     Route: 065
  5. HYDROCODONE BITARTRATE [Concomitant]
     Route: 065
  6. TYLENOL (CAPLET) [Concomitant]
     Indication: PAIN
     Route: 065
     Dates: start: 19660101
  7. IBUPROFEN [Concomitant]
     Route: 065
  8. ASPIRIN [Concomitant]
     Route: 065

REACTIONS (16)
  - ANXIETY [None]
  - CHEST PAIN [None]
  - COLD SWEAT [None]
  - CORONARY ARTERY DISEASE [None]
  - CORONARY ARTERY OCCLUSION [None]
  - DEPRESSION [None]
  - DYSPNOEA [None]
  - FALL [None]
  - HYPERGLYCAEMIA [None]
  - HYPERHIDROSIS [None]
  - HYPERLIPIDAEMIA [None]
  - INGROWING NAIL [None]
  - MYOCARDIAL INFARCTION [None]
  - NAUSEA [None]
  - VULVAL CANCER STAGE 0 [None]
  - VULVAR DYSPLASIA [None]
